FAERS Safety Report 4585399-8 (Version None)
Quarter: 2005Q1

REPORT INFORMATION
  Report Type: 
  Country: None (occurrence: None)
  Receive Date: 20050214
  Receipt Date: 20050129
  Transmission Date: 20050727
  Serious: Yes (Other)
  Sender: FDA-Public Use
  Company Number: 2005007282

PATIENT
  Age: 67 Year
  Sex: Male
  Weight: 77.1115 kg

DRUGS (4)
  1. CELEBREX [Suspect]
     Indication: ARTHRALGIA
     Dosage: 400 MG (200 MG, 2 IN 1 D), ORAL
     Route: 048
  2. SERTRALINE HCL [Concomitant]
  3. DIAZEPAM [Concomitant]
  4. MORPHINE SULFATE [Concomitant]

REACTIONS (2)
  - ARTHRITIS [None]
  - DISEASE RECURRENCE [None]
